FAERS Safety Report 15458880 (Version 1)
Quarter: 2018Q4

REPORT INFORMATION
  Report Type: Spontaneous
  Country: US (occurrence: US)
  Receive Date: 20181001
  Receipt Date: 20181001
  Transmission Date: 20190204
  Serious: Yes (Other)
  Sender: FDA-Public Use
  Company Number: None

PATIENT
  Age: 45 Year
  Sex: Female
  Weight: 76.5 kg

DRUGS (7)
  1. MVI [Concomitant]
     Active Substance: VITAMINS
  2. ESTRADIOL. [Concomitant]
     Active Substance: ESTRADIOL
  3. ATOMOXETIME [Concomitant]
  4. TRIAMTERENE AND HYDROCHLOROTHIAZIDE [Suspect]
     Active Substance: HYDROCHLOROTHIAZIDE\TRIAMTERENE
     Indication: OEDEMA
     Dosage: ?          QUANTITY:1 CAPSULE(S);?
     Route: 048
     Dates: start: 20180919, end: 20181001
  5. FLONASE [Concomitant]
     Active Substance: FLUTICASONE PROPIONATE
  6. METOPROLOL. [Concomitant]
     Active Substance: METOPROLOL
  7. CLARITIN [Concomitant]
     Active Substance: LORATADINE

REACTIONS (4)
  - Product quality issue [None]
  - Dyspnoea [None]
  - Oedema [None]
  - Drug ineffective [None]

NARRATIVE: CASE EVENT DATE: 20180930
